FAERS Safety Report 7793579-3 (Version None)
Quarter: 2011Q4

REPORT INFORMATION
  Report Type: 
  Country: None (occurrence: None)
  Receive Date: 20111003
  Receipt Date: 20110520
  Transmission Date: 20120403
  Serious: Yes (Death, Hospitalization, Other)
  Sender: FDA-Public Use
  Company Number: PHHO2009US02592

PATIENT
  Sex: Male
  Weight: 85.9 kg

DRUGS (26)
  1. WARFARIN SODIUM [Concomitant]
  2. VALIUM [Concomitant]
  3. PREDNISONE [Concomitant]
     Indication: RENAL TRANSPLANT
     Dosage: 5 MG EVERY OTHER DAY
  4. FLEXERIL [Suspect]
     Dosage: 1 DF, BID
  5. WELLBUTRIN [Concomitant]
  6. FUROSEMIDE [Concomitant]
  7. GENGRAF [Concomitant]
     Indication: RENAL TRANSPLANT
     Dosage: 75 MG  DAILY
  8. PERCOCET [Concomitant]
  9. COLACE [Concomitant]
  10. ROCALTROL [Concomitant]
  11. DIGOXIN [Concomitant]
  12. TOPROL-XL [Concomitant]
  13. ZORTRESS [Suspect]
     Indication: RENAL TRANSPLANT
     Dosage: 1.5 MG, BID
     Route: 048
     Dates: start: 20040812, end: 20100224
  14. OMEPRAZOLE [Concomitant]
  15. NIACIN [Concomitant]
  16. DILAUDID [Suspect]
     Dosage: 1 DF, PRN
  17. MULTI-VITAMINS [Concomitant]
  18. ZORTRESS [Suspect]
     Dosage: 1.5 MG AND 0.75 MG, DAILY
     Route: 048
     Dates: start: 20100225
  19. ALLOPURINOL [Concomitant]
  20. FOSAMAX [Concomitant]
  21. TUSSIONEX [Concomitant]
  22. FLOMAX [Concomitant]
  23. OXYCODONE HCL AND ACETAMINOPHEN [Suspect]
     Dosage: 1 DF, Q4H
  24. ZETIA [Concomitant]
  25. TOBRADEX [Concomitant]
  26. DESYREL [Concomitant]

REACTIONS (18)
  - SKIN CANCER METASTATIC [None]
  - METASTASES TO NASAL SINUSES [None]
  - EPISTAXIS [None]
  - VISION BLURRED [None]
  - CANCER PAIN [None]
  - PNEUMONIA [None]
  - PRODUCTIVE COUGH [None]
  - DISEASE PROGRESSION [None]
  - CARCINOMA IN SITU OF EYE [None]
  - DYSARTHRIA [None]
  - MENTAL STATUS CHANGES [None]
  - INFECTION [None]
  - SQUAMOUS CELL CARCINOMA OF SKIN [None]
  - PYREXIA [None]
  - PALPITATIONS [None]
  - OEDEMA PERIPHERAL [None]
  - FATIGUE [None]
  - ATRIAL FIBRILLATION [None]
